FAERS Safety Report 6711108-X (Version None)
Quarter: 2010Q2

REPORT INFORMATION
  Report Type: 
  Country: None (occurrence: None)
  Receive Date: 20100505
  Receipt Date: 20100420
  Transmission Date: 20101027
  Serious: Yes (Other)
  Sender: FDA-Public Use
  Company Number: PHHY2010DE25024

PATIENT
  Sex: Female
  Weight: 80 kg

DRUGS (5)
  1. EMSELEX EXTENDED RELEASE [Suspect]
     Indication: URGE INCONTINENCE
     Dosage: 2.5 MG, UNK
     Route: 048
     Dates: start: 20080828, end: 20080907
  2. BISOPROLOL FUMARATE [Concomitant]
     Indication: HYPERTENSION
     Dosage: 1 DF, QD
     Dates: start: 20040101
  3. TRAMADOL [Concomitant]
     Indication: BACK PAIN
     Dosage: 2 DF, QD
     Dates: start: 19290826
  4. OMEP [Concomitant]
     Indication: BACK PAIN
     Dosage: 1 DF, QD
     Dates: start: 20080826
  5. VOLTAREN [Concomitant]
     Indication: BACK PAIN
     Dosage: 2 DF, QD
     Dates: start: 20080826

REACTIONS (5)
  - ASTHENIA [None]
  - FATIGUE [None]
  - HEPATITIS [None]
  - NAUSEA [None]
  - TRANSAMINASES INCREASED [None]
